FAERS Safety Report 20500228 (Version 3)
Quarter: 2022Q1

REPORT INFORMATION
  Report Type: Other
  Country: NL (occurrence: None)
  Receive Date: 20220222
  Receipt Date: 20220331
  Transmission Date: 20220423
  Serious: Yes (Other)
  Sender: FDA-Public Use
  Company Number: NL-ROCHE-3022468

PATIENT
  Age: 66 Year
  Sex: Male
  Weight: 75 kg

DRUGS (33)
  1. OCRELIZUMAB [Suspect]
     Active Substance: OCRELIZUMAB
     Indication: Primary progressive multiple sclerosis
     Route: 042
     Dates: start: 20190912
  2. LOSARTAN [Concomitant]
     Active Substance: LOSARTAN
  3. SILDENAFIL [Concomitant]
     Active Substance: SILDENAFIL
  4. IMODIUM [Concomitant]
     Active Substance: LOPERAMIDE HYDROCHLORIDE
  5. DESOXIMETASONE [Concomitant]
     Active Substance: DESOXIMETASONE
  6. ASCAL [Concomitant]
  7. PRASUGREL [Concomitant]
     Active Substance: PRASUGREL
  8. METOPROLOL [Concomitant]
     Active Substance: METOPROLOL
     Route: 048
     Dates: start: 20220317
  9. EZETIMIBE [Concomitant]
     Active Substance: EZETIMIBE
     Route: 048
     Dates: start: 20220317
  10. ROSUVASTATIN [Concomitant]
     Active Substance: ROSUVASTATIN
  11. FOSFOMYCIN [Concomitant]
     Active Substance: FOSFOMYCIN
  12. CLOBETASOL [Concomitant]
     Active Substance: CLOBETASOL
  13. DESOXIMETASONE [Concomitant]
     Active Substance: DESOXIMETASONE
  14. LEVOFLOXACIN [Concomitant]
     Active Substance: LEVOFLOXACIN
  15. NITROFURANTOIN [Concomitant]
     Active Substance: NITROFURANTOIN
  16. FAMOTIDINE [Concomitant]
     Active Substance: FAMOTIDINE
  17. AMLODIPINE [Concomitant]
     Active Substance: AMLODIPINE BESYLATE
  18. CODEINE [Concomitant]
     Active Substance: CODEINE
  19. FOLIC ACID [Concomitant]
     Active Substance: FOLIC ACID
  20. OXCARBAZEPINE [Concomitant]
     Active Substance: OXCARBAZEPINE
  21. POLYETHYLENE GLYCOLS [Concomitant]
     Active Substance: POLYETHYLENE GLYCOLS
  22. MIRCERA [Concomitant]
     Active Substance: METHOXY POLYETHYLENE GLYCOL-EPOETIN BETA
  23. BACLOFEN [Concomitant]
     Active Substance: BACLOFEN
  24. NITROGLYCERIN [Concomitant]
     Active Substance: NITROGLYCERIN
  25. CARBAMAZEPINE [Concomitant]
     Active Substance: CARBAMAZEPINE
  26. CHOLECALCIFEROL;TRICALCIUM PHOSPHATE [Concomitant]
  27. FOLIC ACID [Concomitant]
     Active Substance: FOLIC ACID
  28. DYMISTA [Concomitant]
     Active Substance: AZELASTINE HYDROCHLORIDE\FLUTICASONE PROPIONATE
  29. FOSTER [Concomitant]
     Active Substance: BECLOMETHASONE\FORMOTEROL
  30. CIPROFLOXACIN [Concomitant]
     Active Substance: CIPROFLOXACIN
     Route: 048
     Dates: start: 20220207, end: 20220221
  31. BECLOMETHASONE\FORMOTEROL [Concomitant]
     Active Substance: BECLOMETHASONE\FORMOTEROL
     Route: 055
     Dates: start: 20211216, end: 20220203
  32. UREUM [Concomitant]
     Route: 061
     Dates: start: 20220310
  33. MOMETASONE [Concomitant]
     Active Substance: MOMETASONE
     Dates: start: 20220310

REACTIONS (2)
  - Klebsiella infection [Not Recovered/Not Resolved]
  - COVID-19 [Recovered/Resolved]

NARRATIVE: CASE EVENT DATE: 20220202
